FAERS Safety Report 4359305-5 (Version None)
Quarter: 2004Q2

REPORT INFORMATION
  Report Type: 
  Country: None (occurrence: None)
  Receive Date: 20040518
  Receipt Date: 20040512
  Transmission Date: 20050107
  Serious: Yes (Hospitalization)
  Sender: FDA-Public Use
  Company Number: PHNU2004DE01823

PATIENT
  Sex: Male

DRUGS (1)
  1. LAMISIL [Suspect]
     Route: 048

REACTIONS (1)
  - ADVERSE DRUG REACTION [None]
